FAERS Safety Report 10237110 (Version 1)
Quarter: 2014Q2

REPORT INFORMATION
  Report Type: Spontaneous
  Country: US (occurrence: US)
  Receive Date: 20140613
  Receipt Date: 20140613
  Transmission Date: 20141212
  Serious: No
  Sender: FDA-Public Use
  Company Number: US-ASTRAZENECA-2014SE38668

PATIENT
  Age: 785 Month
  Sex: Male
  Weight: 102.1 kg

DRUGS (2)
  1. SYMBICORT [Suspect]
     Indication: CHRONIC OBSTRUCTIVE PULMONARY DISEASE
     Dosage: 320 MCG, BID
     Route: 055
     Dates: start: 20140529
  2. SYMBICORT [Suspect]
     Indication: EMPHYSEMA
     Dosage: 320 MCG, BID
     Route: 055
     Dates: start: 20140529

REACTIONS (2)
  - Dyspnoea [Not Recovered/Not Resolved]
  - Drug ineffective [Not Recovered/Not Resolved]
